FAERS Safety Report 7582416-8 (Version None)
Quarter: 2011Q2

REPORT INFORMATION
  Report Type: 
  Country: None (occurrence: None)
  Receive Date: 20110623
  Receipt Date: 20110601
  Transmission Date: 20111010
  Serious: Yes (Hospitalization)
  Sender: FDA-Public Use
  Company Number: AE-2009-007

PATIENT
  Age: 86 Year
  Sex: Male
  Weight: 60 kg

DRUGS (10)
  1. METOPROLOL TARTRATE [Suspect]
     Indication: ATRIAL FIBRILLATION
     Dosage: 50 MG, QD, ORAL
     Route: 048
     Dates: start: 20070101, end: 20080904
  2. DIGITOXIN TAB [Suspect]
     Indication: ATRIAL FIBRILLATION
     Dosage: 0.07 MG, QD, ORAL
     Route: 048
     Dates: start: 20070101, end: 20080904
  3. HYDROCHLOROTHIAZIDE [Concomitant]
  4. POTASSIUM [Concomitant]
  5. ZOPICLONE [Concomitant]
  6. RIVASTAGAMINE [Suspect]
     Dosage: 9.5 MG QD, CUTANEOUS
     Route: 003
     Dates: start: 20070101, end: 20080904
  7. ASPIRIN [Concomitant]
  8. PIPAMPERONE [Concomitant]
  9. CHOLESTYRAMINE [Concomitant]
  10. RAMIPRIL [Concomitant]

REACTIONS (5)
  - FALL [None]
  - CARDIOACTIVE DRUG LEVEL INCREASED [None]
  - BRADYARRHYTHMIA [None]
  - SYNCOPE [None]
  - ATRIAL FIBRILLATION [None]
